FAERS Safety Report 6518471-3 (Version None)
Quarter: 2009Q4

REPORT INFORMATION
  Report Type: 
  Country: None (occurrence: None)
  Receive Date: 20091226
  Receipt Date: 20091214
  Transmission Date: 20100525
  Serious: Yes (Hospitalization, Other)
  Sender: FDA-Public Use
  Company Number: US-JNJFOC-20091204757

PATIENT
  Age: 73 Year
  Sex: Male

DRUGS (4)
  1. FENTANYL-100 [Suspect]
     Indication: PAIN MANAGEMENT
     Route: 065
  2. OXYCODONE HCL AND ACETAMINOPHEN [Suspect]
     Indication: PAIN MANAGEMENT
  3. ACETAMINOPHEN/PROPOXYPHEN [Suspect]
     Indication: PAIN MANAGEMENT
  4. METHADONE HYDROCHLORIDE [Suspect]
     Indication: PAIN MANAGEMENT

REACTIONS (7)
  - COGNITIVE DISORDER [None]
  - CONFUSIONAL STATE [None]
  - CONSTIPATION [None]
  - DRUG INEFFECTIVE [None]
  - INADEQUATE DIET [None]
  - INSOMNIA [None]
  - SOMNOLENCE [None]
